FAERS Safety Report 13903615 (Version 4)
Quarter: 2019Q1

REPORT INFORMATION
  Report Type: Report from Study
  Country: JP (occurrence: JP)
  Receive Date: 20170824
  Receipt Date: 20190330
  Transmission Date: 20190417
  Serious: Yes (Hospitalization)
  Sender: FDA-Public Use
  Company Number: PHJP2017JP022558

PATIENT
  Age: 7 Year
  Sex: Male
  Weight: 22 kg

DRUGS (7)
  1. ILARIS [Suspect]
     Active Substance: CANAKINUMAB
     Dosage: 90 MG, 4W
     Route: 058
     Dates: start: 20171002
  2. ILARIS [Suspect]
     Active Substance: CANAKINUMAB
     Dosage: 45 MG, UNK
     Route: 058
     Dates: start: 20170605
  3. ILARIS [Suspect]
     Active Substance: CANAKINUMAB
     Dosage: 90 MG, 4W
     Route: 058
     Dates: start: 20171106
  4. ILARIS [Suspect]
     Active Substance: CANAKINUMAB
     Dosage: 90 MG, 4W
     Route: 058
     Dates: start: 20170619, end: 20170719
  5. PREDONINE [Concomitant]
     Active Substance: PREDNISOLONE
     Indication: TUMOUR NECROSIS FACTOR RECEPTOR-ASSOCIATED PERIODIC SYNDROME
     Dosage: UNK
     Route: 048
  6. ILARIS [Suspect]
     Active Substance: CANAKINUMAB
     Dosage: 90 MG, 4W
     Route: 058
     Dates: start: 20170807, end: 20170904
  7. ILARIS [Suspect]
     Active Substance: CANAKINUMAB
     Indication: TUMOUR NECROSIS FACTOR RECEPTOR-ASSOCIATED PERIODIC SYNDROME
     Dosage: 45 MG, UNK
     Route: 058
     Dates: start: 20170515

REACTIONS (3)
  - Diarrhoea [Recovered/Resolved]
  - Pyrexia [Recovered/Resolved]
  - Campylobacter gastroenteritis [Recovered/Resolved]

NARRATIVE: CASE EVENT DATE: 20170605
